FAERS Safety Report 7934932-4 (Version None)
Quarter: 2011Q4

REPORT INFORMATION
  Report Type: 
  Country: None (occurrence: None)
  Receive Date: 20111122
  Receipt Date: 20111118
  Transmission Date: 20120403
  Serious: Yes (Life-Threatening, Hospitalization)
  Sender: FDA-Public Use
  Company Number: CA-BAYER-2011-111697

PATIENT
  Age: 79 Year
  Sex: Female
  Weight: 57 kg

DRUGS (10)
  1. PANTOPRAZOLE SODIUM [Concomitant]
  2. CARBOCAL D [Concomitant]
  3. LASIX [Concomitant]
  4. ATACAND [Concomitant]
  5. TIMOLOL MALEATE [Concomitant]
  6. ATIVAN [Concomitant]
  7. COUMADIN [Concomitant]
  8. ALENDRONATE SODIUM [Concomitant]
  9. AVELOX [Suspect]
     Dosage: 400 MG, UNK
  10. PAROXETINE HCL [Concomitant]

REACTIONS (2)
  - INAPPROPRIATE ANTIDIURETIC HORMONE SECRETION [None]
  - HYPONATRAEMIA [None]
